FAERS Safety Report 20059154 (Version 1)
Quarter: 2021Q4

REPORT INFORMATION
  Report Type: Other
  Country: US (occurrence: None)
  Receive Date: 20211111
  Receipt Date: 20211111
  Transmission Date: 20220303
  Serious: Yes (Death, Hospitalization, Other)
  Sender: FDA-Public Use
  Company Number: US-ROCHE-2949917

PATIENT

DRUGS (10)
  1. ATEZOLIZUMAB [Suspect]
     Active Substance: ATEZOLIZUMAB
     Indication: Neoplasm malignant
     Route: 065
  2. ATEZOLIZUMAB [Suspect]
     Active Substance: ATEZOLIZUMAB
     Indication: Inflammatory bowel disease
  3. IPILIMUMAB [Suspect]
     Active Substance: IPILIMUMAB
     Indication: Neoplasm malignant
     Route: 065
  4. IPILIMUMAB [Suspect]
     Active Substance: IPILIMUMAB
     Indication: Inflammatory bowel disease
  5. NIVOLUMAB [Suspect]
     Active Substance: NIVOLUMAB
     Indication: Neoplasm malignant
     Route: 065
  6. NIVOLUMAB [Suspect]
     Active Substance: NIVOLUMAB
     Indication: Inflammatory bowel disease
  7. DURVALUMAB [Suspect]
     Active Substance: DURVALUMAB
     Indication: Neoplasm malignant
     Route: 065
  8. DURVALUMAB [Suspect]
     Active Substance: DURVALUMAB
     Indication: Inflammatory bowel disease
  9. PEMBROLIZUMAB [Suspect]
     Active Substance: PEMBROLIZUMAB
     Indication: Neoplasm malignant
     Route: 065
  10. PEMBROLIZUMAB [Suspect]
     Active Substance: PEMBROLIZUMAB
     Indication: Inflammatory bowel disease

REACTIONS (22)
  - Death [Fatal]
  - Diarrhoea [Unknown]
  - Immune-mediated enterocolitis [Unknown]
  - Liver injury [Unknown]
  - Embolism venous [Unknown]
  - Endocrine disorder [Unknown]
  - Lung disorder [Unknown]
  - Disease progression [Unknown]
  - Infection [Unknown]
  - Blood disorder [Unknown]
  - Pancreatic injury [Unknown]
  - Nervous system disorder [Unknown]
  - Eye disorder [Unknown]
  - Arthritis [Unknown]
  - Myositis [Unknown]
  - Cardiovascular disorder [Unknown]
  - Rheumatic disorder [Unknown]
  - Renal disorder [Unknown]
  - Colitis [Unknown]
  - Skin disorder [Unknown]
  - Immune system disorder [Unknown]
  - Drug ineffective [Unknown]
